FAERS Safety Report 24028113 (Version 2)
Quarter: 2025Q4

REPORT INFORMATION
  Report Type: Spontaneous
  Country: US (occurrence: US)
  Receive Date: 20240628
  Receipt Date: 20251113
  Transmission Date: 20260118
  Serious: Yes (Hospitalization, Other)
  Sender: AUROBINDO
  Company Number: US-MLMSERVICE-20240612-PI096223-00030-1

PATIENT
  Age: 38 Year
  Sex: Male

DRUGS (2)
  1. ACETAMINOPHEN [Suspect]
     Active Substance: ACETAMINOPHEN
     Indication: Pain
     Dosage: UNK, LARGE, UNKNOWN QUANTITIES
     Route: 065
  2. IBUPROFEN [Suspect]
     Active Substance: IBUPROFEN
     Indication: Pain
     Dosage: UNK, LARGE, UNKNOWN QUANTITIES
     Route: 065

REACTIONS (5)
  - Liver injury [Recovering/Resolving]
  - Bacteraemia [Recovered/Resolved]
  - Renal tubular necrosis [Recovering/Resolving]
  - Parvimonas micra infection [Recovered/Resolved]
  - Intentional product use issue [Recovering/Resolving]
